FAERS Safety Report 5087948-2 (Version None)
Quarter: 2006Q3

REPORT INFORMATION
  Report Type: 
  Country: None (occurrence: None)
  Receive Date: 20060822
  Receipt Date: 20060822
  Transmission Date: 20061208
  Serious: Yes (Hospitalization)
  Sender: FDA-Public Use
  Company Number: None

PATIENT
  Sex: Male
  Weight: 72 kg

DRUGS (7)
  1. WARFARIN SODIUM [Suspect]
     Indication: FACTOR VII DEFICIENCY
     Dosage: 5 MG QD PO
     Route: 048
     Dates: start: 20050529, end: 20060430
  2. ASPIRIN [Suspect]
     Indication: CORONARY ARTERY DISEASE
     Dosage: 81 MG QD PO
     Route: 048
     Dates: start: 20060509
  3. RANITIDINE [Concomitant]
  4. METOPROLOL TARTRATE [Concomitant]
  5. SIMVASTATIN [Concomitant]
  6. DOCUSATE [Concomitant]
  7. SIMETHICONE [Concomitant]

REACTIONS (7)
  - ABDOMINAL DISCOMFORT [None]
  - COLITIS [None]
  - DIZZINESS [None]
  - LARGE INTESTINAL ULCER [None]
  - NAUSEA [None]
  - RECTAL HAEMORRHAGE [None]
  - VOMITING [None]
